FAERS Safety Report 7927615-8 (Version None)
Quarter: 2011Q4

REPORT INFORMATION
  Report Type: 
  Country: None (occurrence: None)
  Receive Date: 20111117
  Receipt Date: 20111117
  Transmission Date: 20120403
  Serious: No
  Sender: FDA-Public Use
  Company Number: None

PATIENT
  Age: 27 Year
  Sex: Female

DRUGS (1)
  1. CREST W/ FLUORIDE [Suspect]
     Indication: INJURY
     Dates: start: 20111031

REACTIONS (6)
  - LIP SWELLING [None]
  - SWOLLEN TONGUE [None]
  - OROPHARYNGEAL BLISTERING [None]
  - ORAL PAIN [None]
  - ORAL MUCOSAL EXFOLIATION [None]
  - STOMATITIS [None]
